FAERS Safety Report 9177866 (Version 1)
Quarter: 2012Q4

REPORT INFORMATION
  Report Type: 
  Country: US (occurrence: US)
  Receive Date: 20121011
  Receipt Date: 20121011
  Transmission Date: 20130627
  Serious: Yes (Other)
  Sender: FDA-Public Use
  Company Number: US-RB-045370-12

PATIENT
  Age: 0 None
  Sex: Male
  Weight: 0 kg

DRUGS (4)
  1. SUBOXONE TABLET [Suspect]
     Indication: DRUG DEPENDENCE
     Route: 064
     Dates: start: 201111
  2. GENERIC BUPRENORPHINE [Suspect]
     Route: 064
     Dates: end: 20120606
  3. GENERIC BUPRENORPHINE [Suspect]
     Indication: DRUG DEPENDENCE
     Route: 063
     Dates: start: 20120606, end: 201208
  4. PRENATAL VITAMINS [Suspect]
     Indication: VITAMIN SUPPLEMENTATION
     Dosage: 1 tablet daily
     Route: 064
     Dates: end: 2012

REACTIONS (4)
  - Foetal exposure during pregnancy [Recovered/Resolved]
  - Premature baby [Recovered/Resolved]
  - Low birth weight baby [Recovered/Resolved]
  - Exposure during breast feeding [Recovered/Resolved]
